FAERS Safety Report 5961090-8 (Version None)
Quarter: 2008Q4

REPORT INFORMATION
  Report Type: 
  Country: None (occurrence: None)
  Receive Date: 20081119
  Receipt Date: 20081112
  Transmission Date: 20090506
  Serious: Yes (Other)
  Sender: FDA-Public Use
  Company Number: 2008SP005157

PATIENT
  Age: 41 Year
  Sex: Male

DRUGS (3)
  1. PEG-INTRON [Suspect]
     Indication: HEPATITIS C
     Dosage: 1.5 MCG/KG;QW
  2. REBETOL [Suspect]
     Indication: HEPATITIS C
     Dosage: 1.2 GM;QD
  3. AZATHIOPRINE [Suspect]
     Indication: CROHN'S DISEASE
     Dosage: 2 MG/KG; QD

REACTIONS (2)
  - DRUG INTERACTION [None]
  - PANCYTOPENIA [None]
